FAERS Safety Report 6100081-3 (Version None)
Quarter: 2009Q1

REPORT INFORMATION
  Report Type: 
  Country: None (occurrence: None)
  Receive Date: 20090303
  Receipt Date: 20090225
  Transmission Date: 20090719
  Serious: Yes (Other)
  Sender: FDA-Public Use
  Company Number: B0562230A

PATIENT
  Age: 60 Year
  Sex: Female

DRUGS (4)
  1. FORTUM [Suspect]
     Indication: INFECTION
     Route: 042
  2. TRAMADOL HCL [Concomitant]
  3. NIFEDIPINE [Concomitant]
  4. METOPROLOL [Concomitant]

REACTIONS (4)
  - CONFUSIONAL STATE [None]
  - DELIRIUM [None]
  - DISORIENTATION [None]
  - DYSKINESIA [None]
